FAERS Safety Report 24793883 (Version 1)
Quarter: 2024Q4

REPORT INFORMATION
  Report Type: Spontaneous
  Country: BR (occurrence: BR)
  Receive Date: 20241231
  Receipt Date: 20241231
  Transmission Date: 20250114
  Serious: Yes (Other)
  Sender: SANDOZ
  Company Number: BR-SANDOZ-SDZ2024BR104228

PATIENT
  Sex: Female

DRUGS (9)
  1. KISQALI [Suspect]
     Active Substance: RIBOCICLIB
     Dosage: 2 TABLETS,  ONCE DAILY
     Route: 048
     Dates: start: 202410
  2. KISQALI [Suspect]
     Active Substance: RIBOCICLIB
     Indication: Metastases to bone
     Dosage: 3 TABLETS, ONCE DAILY
     Route: 048
     Dates: start: 202405, end: 202410
  3. LOSARTAN [Suspect]
     Active Substance: LOSARTAN
     Indication: Hypertension
     Dosage: UNK UNK, QD
     Route: 048
     Dates: start: 202210
  4. ASPIRIN [Concomitant]
     Active Substance: ASPIRIN
     Indication: Infarction
     Dosage: UNK, QD
     Route: 048
     Dates: start: 202210
  5. CLOPIDOGREL [Concomitant]
     Active Substance: CLOPIDOGREL BISULFATE
     Indication: Infarction
     Dosage: UNK, QD
     Route: 048
     Dates: start: 202210
  6. METOPROLOL [Concomitant]
     Active Substance: METOPROLOL
     Indication: Hypertension
     Dosage: UNK, QD
     Route: 048
     Dates: start: 202210
  7. PANTOPRAZOLE SODIUM [Concomitant]
     Active Substance: PANTOPRAZOLE SODIUM
     Indication: Abdominal pain upper
     Dosage: UNK, QD
     Route: 048
     Dates: start: 202210
  8. PREGABALIN [Concomitant]
     Active Substance: PREGABALIN
     Indication: Pain
     Dosage: UNK
     Route: 048
     Dates: start: 202406
  9. ROSUVASTATIN [Concomitant]
     Active Substance: ROSUVASTATIN
     Indication: Blood cholesterol increased
     Dosage: UNK, QD
     Route: 048
     Dates: start: 202210

REACTIONS (3)
  - Breast cancer [Recovered/Resolved]
  - Platelet count decreased [Recovered/Resolved]
  - Pruritus [Not Recovered/Not Resolved]
